FAERS Safety Report 5138784-X (Version None)
Quarter: 2006Q4

REPORT INFORMATION
  Report Type: 
  Country: None (occurrence: None)
  Receive Date: 20061024
  Receipt Date: 20061005
  Transmission Date: 20070319
  Serious: Yes (Other)
  Sender: FDA-Public Use
  Company Number: 2006SP003888

PATIENT
  Sex: Female

DRUGS (1)
  1. ALBUTEROL SULFATE [Suspect]
     Indication: DRUG USE FOR UNKNOWN INDICATION
     Dosage: 0 DF; INH
     Route: 055
     Dates: start: 19960101, end: 20061001

REACTIONS (3)
  - LUNG NEOPLASM [None]
  - ORAL MUCOSAL DISCOLOURATION [None]
  - PALATAL DISORDER [None]
